FAERS Safety Report 9343967 (Version 2)
Quarter: 2013Q3

REPORT INFORMATION
  Report Type: Report from Study
  Country: US (occurrence: US)
  Receive Date: 20130612
  Receipt Date: 20130703
  Transmission Date: 20140515
  Serious: Yes (Hospitalization, Other)
  Sender: FDA-Public Use
  Company Number: PHEH2013US011985

PATIENT
  Sex: Male
  Weight: 77.5 kg

DRUGS (1)
  1. GLEEVEC [Suspect]
     Indication: CHRONIC MYELOID LEUKAEMIA
     Dosage: 400 MG, DAILY
     Route: 048
     Dates: start: 20121107, end: 20130530

REACTIONS (9)
  - Chronic myeloid leukaemia [Unknown]
  - Leukaemia recurrent [Unknown]
  - Cancer pain [Unknown]
  - Renal tubular necrosis [Unknown]
  - Thrombocytopenia [Unknown]
  - Diarrhoea [Unknown]
  - Petechiae [Unknown]
  - Abdominal pain [Unknown]
  - Pyrexia [Unknown]
